FAERS Safety Report 23084769 (Version 1)
Quarter: 2023Q4

REPORT INFORMATION
  Report Type: Spontaneous
  Country: FR (occurrence: FR)
  Receive Date: 20231019
  Receipt Date: 20231019
  Transmission Date: 20240110
  Serious: Yes (Death, Other)
  Sender: FDA-Public Use
  Company Number: FR-AFSSAPS-NY2023000881

PATIENT
  Age: 40 Year
  Sex: Female
  Weight: 119 kg

DRUGS (8)
  1. FLUOXETINE [Suspect]
     Active Substance: FLUOXETINE HYDROCHLORIDE
     Indication: Schizophrenia
     Dosage: 20 MILLIGRAM, DAILY
     Route: 048
     Dates: end: 20230605
  2. MIDAZOLAM [Suspect]
     Active Substance: MIDAZOLAM
     Indication: Sedation
     Dosage: UNK
     Route: 040
     Dates: start: 20230531, end: 20230606
  3. DEXMEDETOMIDINE [Suspect]
     Active Substance: DEXMEDETOMIDINE
     Indication: Sedation
     Dosage: UNK
     Route: 048
     Dates: start: 20230604, end: 20230607
  4. SUFENTANIL [Suspect]
     Active Substance: SUFENTANIL
     Indication: Sedation
     Dosage: UNK
     Route: 040
     Dates: start: 20230531, end: 20230605
  5. HALDOL [Suspect]
     Active Substance: HALOPERIDOL
     Indication: Schizophrenia
     Dosage: 10 MILLIGRAM, DAILY
     Route: 048
     Dates: end: 20230605
  6. TROPATEPINE HYDROCHLORIDE [Suspect]
     Active Substance: TROPATEPINE HYDROCHLORIDE
     Indication: Schizophrenia
     Dosage: 10 MILLIGRAM, DAILY
     Route: 048
     Dates: end: 20230605
  7. PALIPERIDONE PALMITATE [Suspect]
     Active Substance: PALIPERIDONE PALMITATE
     Indication: Schizophrenia
     Dosage: 1 DOSAGE FORM, MONTHLY
     Route: 030
  8. CISATRACURIUM [Suspect]
     Active Substance: CISATRACURIUM
     Indication: Sedation
     Dosage: UNK
     Route: 040
     Dates: start: 20230531, end: 20230607

REACTIONS (1)
  - Hyperthermia malignant [Fatal]

NARRATIVE: CASE EVENT DATE: 20230531
